FAERS Safety Report 4627147-9 (Version None)
Quarter: 2005Q2

REPORT INFORMATION
  Report Type: 
  Country: None (occurrence: None)
  Receive Date: 20050405
  Receipt Date: 20050125
  Transmission Date: 20051028
  Serious: Yes (Hospitalization)
  Sender: FDA-Public Use
  Company Number: JP-GLAXOSMITHKLINE-B0366016A

PATIENT
  Age: 68 Year
  Sex: Male
  Weight: 71 kg

DRUGS (16)
  1. ZOVIRAX [Suspect]
     Indication: HERPES ZOSTER
     Dosage: 250MG THREE TIMES PER DAY
     Route: 042
     Dates: start: 20041110, end: 20041113
  2. VICCILLIN [Suspect]
     Indication: ERYSIPELAS
     Dosage: 1G TWICE PER DAY
     Route: 042
     Dates: start: 20041110, end: 20041112
  3. DALACIN [Concomitant]
     Indication: ERYSIPELAS
     Dosage: 300MG THREE TIMES PER DAY
     Route: 048
     Dates: start: 20041115, end: 20041122
  4. FERROMIA (JAPAN) [Concomitant]
     Indication: ANAEMIA
     Dosage: 50MG TWICE PER DAY
     Route: 048
     Dates: start: 20041112, end: 20041122
  5. CALONAL [Concomitant]
     Indication: PYREXIA
     Dosage: 400MG THREE TIMES PER DAY
     Route: 048
     Dates: start: 20041111, end: 20041119
  6. LACTEC [Concomitant]
     Indication: DEHYDRATION
     Dosage: 1000ML PER DAY
     Route: 042
     Dates: start: 20041110, end: 20041110
  7. KN 1A [Concomitant]
     Indication: DEHYDRATION
     Dosage: 2500ML PER DAY
     Route: 042
     Dates: start: 20041110, end: 20041112
  8. DALACIN [Concomitant]
     Dosage: 1800MG PER DAY
     Route: 042
     Dates: start: 20041113, end: 20041115
  9. EVAMYL [Concomitant]
     Indication: INSOMNIA
     Dosage: 1MG PER DAY
     Route: 048
     Dates: start: 20041112, end: 20041119
  10. MELBIN [Concomitant]
     Indication: DIABETES MELLITUS
     Dosage: 750MG PER DAY
     Route: 048
  11. BASEN [Concomitant]
     Indication: DIABETES MELLITUS
     Dosage: .9MG PER DAY
     Route: 048
  12. AMARYL [Concomitant]
     Indication: DIABETES MELLITUS
     Dosage: 6MG PER DAY
     Route: 048
  13. XYLOCAINE [Concomitant]
     Indication: ASPIRATION BONE MARROW
     Dosage: 10ML PER DAY
     Route: 023
     Dates: start: 20041116, end: 20041116
  14. POVIDONE IODINE [Concomitant]
     Indication: ASPIRATION BONE MARROW
     Dosage: 10ML PER DAY
     Route: 061
     Dates: start: 20041116, end: 20041116
  15. HUMULIN R [Concomitant]
     Indication: DIABETES MELLITUS
     Route: 058
     Dates: start: 20041111
  16. FUCIDINE CAP [Concomitant]
     Indication: ERYSIPELAS
     Route: 061
     Dates: start: 20041115

REACTIONS (6)
  - ALOPECIA [None]
  - ANAEMIA [None]
  - MYELODYSPLASTIC SYNDROME [None]
  - PANCYTOPENIA [None]
  - PLATELET COUNT DECREASED [None]
  - WHITE BLOOD CELL COUNT DECREASED [None]
